FAERS Safety Report 21466883 (Version 1)
Quarter: 2022Q4

REPORT INFORMATION
  Report Type: Spontaneous
  Country: US (occurrence: US)
  Receive Date: 20221017
  Receipt Date: 20221017
  Transmission Date: 20230113
  Serious: Yes (Death, Hospitalization, Other)
  Sender: FDA-Public Use
  Company Number: US-SA-2022SA416726

PATIENT
  Age: 73 Year
  Sex: Male

DRUGS (3)
  1. ENOXAPARIN SODIUM [Suspect]
     Active Substance: ENOXAPARIN SODIUM
  2. REMDESIVIR [Concomitant]
     Active Substance: REMDESIVIR
  3. HYDROCORTISONE [Concomitant]
     Active Substance: HYDROCORTISONE

REACTIONS (6)
  - Arterial rupture [Fatal]
  - Hypotension [Fatal]
  - Circulatory collapse [Fatal]
  - Retroperitoneal haematoma [Fatal]
  - Shock haemorrhagic [Fatal]
  - Cardiac arrest [Fatal]
